FAERS Safety Report 16636903 (Version 1)
Quarter: 2019Q3

REPORT INFORMATION
  Report Type: Spontaneous
  Country: FR (occurrence: FR)
  Receive Date: 20190726
  Receipt Date: 20190726
  Transmission Date: 20191004
  Serious: Yes (Hospitalization)
  Sender: FDA-Public Use
  Company Number: FR-PFIZER INC-2019312450

PATIENT
  Age: 46 Year
  Sex: Female
  Weight: 55 kg

DRUGS (1)
  1. SUTENT [Suspect]
     Active Substance: SUNITINIB MALATE
     Indication: LUNG NEOPLASM MALIGNANT
     Dosage: 25 MG, 1X/DAY (2 WEEKS/3)
     Route: 048
     Dates: start: 2018, end: 20190326

REACTIONS (6)
  - Product use in unapproved indication [Unknown]
  - Cutaneous lupus erythematosus [Recovering/Resolving]
  - Rash erythematous [Recovering/Resolving]
  - Thrombocytopenia [Recovered/Resolved]
  - Off label use [Unknown]
  - Acute kidney injury [Unknown]

NARRATIVE: CASE EVENT DATE: 2018
